FAERS Safety Report 13751251 (Version 1)
Quarter: 2017Q3

REPORT INFORMATION
  Report Type: Spontaneous
  Country: US (occurrence: US)
  Receive Date: 20170713
  Receipt Date: 20170713
  Transmission Date: 20171127
  Serious: No
  Sender: FDA-Public Use
  Company Number: US-ASTELLAS-2017US012856

PATIENT
  Sex: Female

DRUGS (1)
  1. MYRBETRIQ [Suspect]
     Active Substance: MIRABEGRON
     Indication: PRODUCT USED FOR UNKNOWN INDICATION
     Dosage: 25 MG, ONCE DAILY (FOR 2 DAYS)
     Route: 065

REACTIONS (3)
  - Pollakiuria [Unknown]
  - Nocturia [Unknown]
  - Micturition urgency [Unknown]

NARRATIVE: CASE EVENT DATE: 20170330
